FAERS Safety Report 15798057 (Version 2)
Quarter: 2019Q1

REPORT INFORMATION
  Report Type: Spontaneous
  Country: GB (occurrence: GB)
  Receive Date: 20190108
  Receipt Date: 20190114
  Transmission Date: 20190417
  Serious: Yes (Hospitalization)
  Sender: FDA-Public Use
  Company Number: GB-PFIZER INC-2019006590

PATIENT
  Age: 69 Year
  Sex: Male

DRUGS (17)
  1. SMOFLIPID [Suspect]
     Active Substance: FISH OIL\MEDIUM-CHAIN TRIGLYCERIDES\OLIVE OIL\SOYBEAN OIL
     Dosage: UNK
  2. AMINOVEN GLUCOSE/ELECTROLYTES [Suspect]
     Active Substance: AMINO ACIDS\DEXTROSE\ELECTROLYTES NOS
     Dosage: UNK
     Route: 042
  3. WATER FOR INJECTION [Suspect]
     Active Substance: WATER
     Dosage: UNK
  4. COPPER SULFATE [Suspect]
     Active Substance: CUPRIC SULFATE ANHYDROUS
     Dosage: UNK
  5. GLUCOSE 50% [Suspect]
     Active Substance: DEXTROSE
     Dosage: UNK
  6. ZINC SULFATE [Suspect]
     Active Substance: ZINC SULFATE\ZINC SULFATE ANHYDROUS
     Dosage: UNK
  7. SOLUVIT N [Suspect]
     Active Substance: VITAMINS
     Dosage: UNK
  8. AMINOVEN GLUCOSE/ELECTROLYTES [Suspect]
     Active Substance: AMINO ACIDS\DEXTROSE\ELECTROLYTES NOS
     Dosage: UNK
     Route: 042
  9. SODIUM GLYCEROPHOSPHATE [Suspect]
     Active Substance: SODIUM GLYCEROPHOSPHATE
     Dosage: UNK
  10. BACTERIOSTATIC SODIUM CHLORIDE [Suspect]
     Active Substance: SODIUM CHLORIDE
     Dosage: UNK
  11. MAGNESIUM SULFATE. [Suspect]
     Active Substance: MAGNESIUM SULFATE
     Dosage: UNK
  12. FERROUS CHLORIDE [Suspect]
     Active Substance: FERROUS CHLORIDE
     Dosage: UNK
  13. CALCIUM CHLORIDE. [Suspect]
     Active Substance: CALCIUM CHLORIDE
     Dosage: UNK
  14. VITALIPID ADULT [Suspect]
     Active Substance: ERGOCALCIFEROL\PHYTONADIONE\RETINOL\TOCOPHEROL
     Dosage: UNK
  15. POTASSIUM CHLORIDE ATLANTIC [Suspect]
     Active Substance: POTASSIUM CHLORIDE
     Dosage: 150 MG/ML, UNK
  16. AMINOVEN GLUCOSE/ELECTROLYTES [Suspect]
     Active Substance: AMINO ACIDS\DEXTROSE\ELECTROLYTES NOS
     Dosage: UNK
  17. SODIUM SELENITE [Suspect]
     Active Substance: SODIUM SELENITE
     Dosage: UNK

REACTIONS (3)
  - Nervous system disorder [Unknown]
  - Abnormal behaviour [Unknown]
  - Dysarthria [Unknown]

NARRATIVE: CASE EVENT DATE: 20180903
